FAERS Safety Report 14150466 (Version 1)
Quarter: 2017Q4

REPORT INFORMATION
  Report Type: Report from Study
  Country: US (occurrence: US)
  Receive Date: 20171101
  Receipt Date: 20171101
  Transmission Date: 20180321
  Serious: Yes (Hospitalization)
  Sender: FDA-Public Use
  Company Number: US-GILEAD-2017-0301731

PATIENT
  Age: 61 Year
  Sex: Female

DRUGS (14)
  1. ADVAIR HFA [Concomitant]
     Active Substance: FLUTICASONE PROPIONATE\SALMETEROL XINAFOATE
  2. ASPIRIN                            /00002701/ [Concomitant]
     Active Substance: ASPIRIN
  3. METOCLOPRAM [Concomitant]
     Active Substance: METOCLOPRAMIDE
  4. PROPRANOLOL [Concomitant]
     Active Substance: PROPRANOLOL HYDROCHLORIDE
  5. XANAX [Concomitant]
     Active Substance: ALPRAZOLAM
  6. OXYCODONE [Concomitant]
     Active Substance: OXYCODONE
  7. ADCIRCA [Concomitant]
     Active Substance: TADALAFIL
  8. LASIX [Concomitant]
     Active Substance: FUROSEMIDE
  9. ZOLOFT [Concomitant]
     Active Substance: SERTRALINE HYDROCHLORIDE
  10. AMBRISENTAN [Suspect]
     Active Substance: AMBRISENTAN
     Indication: PULMONARY HYPERTENSION
     Dosage: 5 MG, QD
     Route: 065
     Dates: start: 20130530
  11. OMEPRAZOLE. [Concomitant]
     Active Substance: OMEPRAZOLE
  12. IRON [Concomitant]
     Active Substance: IRON
  13. POTASSIUM [Concomitant]
     Active Substance: POTASSIUM
  14. CIALIS [Concomitant]
     Active Substance: TADALAFIL

REACTIONS (2)
  - Dyspnoea [Unknown]
  - Product use issue [Unknown]

NARRATIVE: CASE EVENT DATE: 20171011
